FAERS Safety Report 4519852-X (Version None)
Quarter: 2004Q4

REPORT INFORMATION
  Report Type: 
  Country: None (occurrence: None)
  Receive Date: 20041207
  Receipt Date: 20041202
  Transmission Date: 20050328
  Serious: Yes (Hospitalization)
  Sender: FDA-Public Use
  Company Number: PHEH2004US12871

PATIENT
  Sex: 0

DRUGS (2)
  1. CLOZARIL [Suspect]
     Indication: MEDICATION ERROR
     Dosage: 100 MG, TWICE
     Route: 048
  2. PLETAL [Suspect]
     Indication: INTERMITTENT CLAUDICATION
     Dosage: 100 MG, BID
     Route: 048

REACTIONS (2)
  - MEDICATION ERROR [None]
  - NEUROLOGICAL SYMPTOM [None]
